FAERS Safety Report 9103613 (Version 1)
Quarter: 2013Q1

REPORT INFORMATION
  Report Type: Spontaneous
  Country: JP (occurrence: JP)
  Receive Date: 20130219
  Receipt Date: 20130219
  Transmission Date: 20140127
  Serious: Yes (Other)
  Sender: FDA-Public Use
  Company Number: JP-GLAXOSMITHKLINE-B0868047A

PATIENT
  Sex: Female

DRUGS (1)
  1. FLUTIDE [Suspect]
     Indication: PRODUCT USED FOR UNKNOWN INDICATION
     Route: 055
     Dates: start: 201211

REACTIONS (4)
  - Gastric haemorrhage [Unknown]
  - Abdominal pain upper [Not Recovered/Not Resolved]
  - Gastritis [Unknown]
  - Hypophagia [Unknown]
